FAERS Safety Report 19362322 (Version 2)
Quarter: 2021Q2

REPORT INFORMATION
  Report Type: Spontaneous
  Country: ID (occurrence: ID)
  Receive Date: 20210603
  Receipt Date: 20210614
  Transmission Date: 20210717
  Serious: Yes (Life-Threatening, Other)
  Sender: FDA-Public Use
  Company Number: ID-ACS-002018

PATIENT
  Age: 8 Year
  Sex: Male
  Weight: 17 kg

DRUGS (3)
  1. METRONIDAZOLE. [Suspect]
     Active Substance: METRONIDAZOLE
     Indication: TETANUS
     Dosage: 1 DF THREE TIMES A DAY
     Route: 042
  2. CEFTRIAXONE. [Suspect]
     Active Substance: CEFTRIAXONE
     Indication: TETANUS
     Dosage: 1 DF TWICE A DAY
     Route: 042
  3. DIAZEPAM. [Concomitant]
     Active Substance: DIAZEPAM
     Indication: MUSCLE SPASMS
     Route: 042

REACTIONS (2)
  - Tetanus [Recovering/Resolving]
  - Condition aggravated [Recovering/Resolving]
